FAERS Safety Report 5966030-3 (Version None)
Quarter: 2008Q4

REPORT INFORMATION
  Report Type: 
  Country: None (occurrence: None)
  Receive Date: 20081125
  Receipt Date: 20081117
  Transmission Date: 20090506
  Serious: Yes (Hospitalization)
  Sender: FDA-Public Use
  Company Number: JP-JNJFOC-20081103663

PATIENT
  Sex: Female
  Weight: 70 kg

DRUGS (10)
  1. REMICADE [Suspect]
     Dosage: INFUSION 2-3 ON UNSPECIFIED DATES
     Route: 042
  2. REMICADE [Suspect]
     Indication: RHEUMATOID ARTHRITIS
     Route: 042
  3. METHOTREXATE [Suspect]
     Indication: RHEUMATOID ARTHRITIS
     Route: 048
  4. RABEPRAZOLE SODIUM [Concomitant]
     Route: 048
  5. NEOISCOTIN [Concomitant]
     Indication: TUBERCULOSIS
     Route: 048
  6. PYDOXAL [Concomitant]
     Indication: TUBERCULOSIS
     Route: 048
  7. CONIEL [Concomitant]
     Indication: HYPERTENSION
     Route: 048
  8. MUCOSTA [Concomitant]
     Route: 048
  9. HYPEN [Concomitant]
     Route: 048
  10. PRORENAL [Concomitant]
     Dosage: DOSE 15RG
     Route: 048

REACTIONS (2)
  - INTERSTITIAL LUNG DISEASE [None]
  - TUBERCULOSIS [None]
